FAERS Safety Report 15098220 (Version 2)
Quarter: 2018Q3

REPORT INFORMATION
  Report Type: Spontaneous
  Country: US (occurrence: US)
  Receive Date: 20180702
  Receipt Date: 20180920
  Transmission Date: 20181010
  Serious: No
  Sender: FDA-Public Use
  Company Number: US-IGSA-SR10006444

PATIENT
  Age: 34 Year
  Sex: Female

DRUGS (1)
  1. GAMUNEX?C [Suspect]
     Active Substance: HUMAN IMMUNOGLOBULIN G
     Indication: PRODUCT USED FOR UNKNOWN INDICATION
     Dosage: 100 ML, Q.WK.
     Route: 042
     Dates: start: 201706

REACTIONS (1)
  - Treponema test positive [Recovered/Resolved]

NARRATIVE: CASE EVENT DATE: 20180521
